FAERS Safety Report 8827895 (Version 2)
Quarter: 2012Q4

REPORT INFORMATION
  Report Type: 
  Country: US (occurrence: US)
  Receive Date: 20121005
  Receipt Date: 20121009
  Transmission Date: 20130627
  Serious: Yes (Other)
  Sender: FDA-Public Use
  Company Number: US-PFIZER INC-2012243554

PATIENT
  Age: 60 Year
  Sex: Female
  Weight: 66 kg

DRUGS (3)
  1. CELEBREX [Suspect]
     Indication: ARTHRALGIA
     Dosage: 200 mg, 1x/day
     Route: 048
     Dates: start: 201207, end: 201207
  2. PROTONIX [Concomitant]
     Indication: GASTRIC ULCER
     Dosage: UNK
  3. CARAFATE [Concomitant]
     Indication: GASTRIC ULCER
     Dosage: UNK

REACTIONS (2)
  - Gastric ulcer [Recovered/Resolved]
  - Inflammation [Unknown]
